FAERS Safety Report 10672482 (Version 1)
Quarter: 2014Q4

REPORT INFORMATION
  Report Type: Spontaneous
  Country: US (occurrence: US)
  Receive Date: 20141223
  Receipt Date: 20141223
  Transmission Date: 20150529
  Serious: Yes (Other)
  Sender: FDA-Public Use
  Company Number: US-ELI_LILLY_AND_COMPANY-US201412006466

PATIENT
  Age: 46 Year
  Sex: Female
  Weight: 154 kg

DRUGS (11)
  1. DEPAKOTE [Suspect]
     Active Substance: DIVALPROEX SODIUM
     Indication: DEPRESSION
     Dosage: 1000 MG, BID
  2. ALBUTEROL                          /00139501/ [Concomitant]
     Active Substance: ALBUTEROL
  3. HYDROCODONE [Concomitant]
     Active Substance: HYDROCODONE
  4. NABUMETONE. [Concomitant]
     Active Substance: NABUMETONE
  5. LYRICA [Suspect]
     Active Substance: PREGABALIN
     Indication: FIBROMYALGIA
     Dosage: 60 MG, BID
     Route: 065
  6. FIORICET [Concomitant]
     Active Substance: ACETAMINOPHEN\BUTALBITAL\CAFFEINE
  7. CYMBALTA [Suspect]
     Active Substance: DULOXETINE HYDROCHLORIDE
     Indication: PRODUCT USED FOR UNKNOWN INDICATION
     Route: 065
  8. FLEXERIL [Concomitant]
     Active Substance: CYCLOBENZAPRINE HYDROCHLORIDE
  9. ADVAIR HFA [Concomitant]
     Active Substance: FLUTICASONE PROPIONATE\SALMETEROL XINAFOATE
  10. CELEXA [Concomitant]
     Active Substance: CITALOPRAM HYDROBROMIDE
  11. TOPIRAMATE. [Concomitant]
     Active Substance: TOPIRAMATE

REACTIONS (12)
  - Lower limb fracture [Unknown]
  - Joint deposit [Unknown]
  - Drug ineffective [Unknown]
  - Fall [Unknown]
  - Pruritus [Unknown]
  - Pain [Unknown]
  - Spinal disorder [Unknown]
  - Venous haemorrhage [Unknown]
  - Weight increased [Not Recovered/Not Resolved]
  - Neck injury [Unknown]
  - Amnesia [Unknown]
  - Peripheral swelling [Unknown]

NARRATIVE: CASE EVENT DATE: 2011
